FAERS Safety Report 19240044 (Version 1)
Quarter: 2021Q2

REPORT INFORMATION
  Report Type: Spontaneous
  Country: ES (occurrence: ES)
  Receive Date: 20210510
  Receipt Date: 20210510
  Transmission Date: 20210717
  Serious: Yes (Hospitalization)
  Sender: FDA-Public Use
  Company Number: ES-PFIZER INC-2021461235

PATIENT
  Age: 60 Year
  Sex: Male

DRUGS (5)
  1. GEMCITABINE HYDROCHLORIDE. [Suspect]
     Active Substance: GEMCITABINE HYDROCHLORIDE
     Indication: METASTATIC CARCINOMA OF THE BLADDER
     Dosage: 1900 MG, CYCLIC (CYCLE 1)
     Route: 042
     Dates: start: 20200602
  2. TAMSULOSINA MYLAN PHARMACEUTICALS [Concomitant]
     Indication: BENIGN PROSTATIC HYPERPLASIA
     Dates: start: 20200428
  3. CARBOPLATIN. [Suspect]
     Active Substance: CARBOPLATIN
     Indication: METASTATIC CARCINOMA OF THE BLADDER
     Dosage: 130 MG, CYCLIC (CYCLE 1)
     Route: 042
     Dates: start: 20200602
  4. ZOLISTAN [Concomitant]
     Indication: RHINITIS ALLERGIC
     Dates: start: 20100316
  5. HYDROCHLOROTHIAZIDE/VALSARTAN [Concomitant]
     Active Substance: HYDROCHLOROTHIAZIDE\VALSARTAN
     Indication: HYPERTENSION
     Dates: start: 20100316

REACTIONS (1)
  - Acute kidney injury [Recovered/Resolved]

NARRATIVE: CASE EVENT DATE: 20200604
